FAERS Safety Report 13360656 (Version 24)
Quarter: 2020Q3

REPORT INFORMATION
  Report Type: Report from Study
  Country: US (occurrence: US)
  Receive Date: 20170322
  Receipt Date: 20200724
  Transmission Date: 20201102
  Serious: Yes (Hospitalization)
  Sender: FDA-Public Use
  Company Number: US-ACTELION-A-US2016-146665

PATIENT
  Age: 44 Year
  Sex: Female
  Weight: 78.01 kg

DRUGS (17)
  1. VELETRI [Suspect]
     Active Substance: EPOPROSTENOL
     Dosage: 30 NG/KG, PER MIN
     Route: 042
  2. VELETRI [Suspect]
     Active Substance: EPOPROSTENOL
     Dosage: 33.5 NG/KG, PER MIN
     Route: 042
  3. WARFARIN [Concomitant]
     Active Substance: WARFARIN
  4. XANAX [Concomitant]
     Active Substance: ALPRAZOLAM
     Dosage: 0.5 MG, UNK
     Dates: start: 20171129
  5. VELETRI [Suspect]
     Active Substance: EPOPROSTENOL
     Dosage: 27.4 NG/KG, PER MIN
     Route: 042
  6. AZITHROMYCIN ANHYDROUS. [Concomitant]
     Active Substance: AZITHROMYCIN ANHYDROUS
  7. PREDNISONE. [Concomitant]
     Active Substance: PREDNISONE
  8. SILDENAFIL. [Concomitant]
     Active Substance: SILDENAFIL
  9. OPSUMIT [Suspect]
     Active Substance: MACITENTAN
     Indication: PULMONARY ARTERIAL HYPERTENSION
     Dosage: 10 MG, QD
     Route: 048
     Dates: start: 20160909
  10. VELETRI [Suspect]
     Active Substance: EPOPROSTENOL
     Dosage: 30.5 NG/KG, PER MIN
     Route: 042
  11. VELETRI [Suspect]
     Active Substance: EPOPROSTENOL
     Indication: PULMONARY ARTERIAL HYPERTENSION
     Dosage: 32 NG/KG, PER MIN
     Route: 042
  12. OPSUMIT [Suspect]
     Active Substance: MACITENTAN
     Dosage: UNK
     Route: 048
  13. OPSUMIT [Suspect]
     Active Substance: MACITENTAN
     Dosage: 10 MG, QD
     Route: 048
     Dates: start: 20160909
  14. CARAFATE [Concomitant]
     Active Substance: SUCRALFATE
     Dosage: 1 MG, UNK
     Dates: start: 20171129
  15. OMEPRAZOLE. [Concomitant]
     Active Substance: OMEPRAZOLE
     Dosage: 20 MG, UNK
     Dates: start: 20171129
  16. VENLAFAXINE [Concomitant]
     Active Substance: VENLAFAXINE HYDROCHLORIDE
     Dosage: 37.5 MG, UNK
  17. BENZONATATE. [Concomitant]
     Active Substance: BENZONATATE

REACTIONS (37)
  - Malaise [Unknown]
  - Pneumonia [Unknown]
  - Fatigue [Unknown]
  - Dyspnoea exertional [Unknown]
  - Headache [Recovered/Resolved]
  - Diarrhoea [Recovered/Resolved]
  - Nausea [Recovered/Resolved]
  - Hyperhidrosis [Recovering/Resolving]
  - Device breakage [Unknown]
  - Pain in jaw [Unknown]
  - Pericardial effusion [Unknown]
  - Influenza [Recovering/Resolving]
  - Vomiting [Recovered/Resolved]
  - Flushing [Recovered/Resolved]
  - Pain in extremity [Unknown]
  - Dysphonia [Unknown]
  - Catheter management [Unknown]
  - Blood potassium decreased [Unknown]
  - Dyspepsia [Unknown]
  - Fluid retention [Unknown]
  - Oedema peripheral [Unknown]
  - Myalgia [Not Recovered/Not Resolved]
  - Presyncope [Recovering/Resolving]
  - Pleural effusion [Unknown]
  - Pharyngitis streptococcal [Unknown]
  - Croup infectious [Unknown]
  - Visual impairment [Not Recovered/Not Resolved]
  - Dizziness [Recovering/Resolving]
  - Hypoacusis [Not Recovered/Not Resolved]
  - Emergency care [Unknown]
  - Dyspnoea [Recovering/Resolving]
  - Feeding disorder [Unknown]
  - Ascites [Unknown]
  - Oxygen saturation decreased [Unknown]
  - Arthralgia [Not Recovered/Not Resolved]
  - Palpitations [Not Recovered/Not Resolved]
  - Device issue [Recovered/Resolved]

NARRATIVE: CASE EVENT DATE: 201802
